FAERS Safety Report 10982281 (Version 1)
Quarter: 2015Q2

REPORT INFORMATION
  Report Type: Spontaneous
  Country: US (occurrence: None)
  Receive Date: 20150401
  Receipt Date: 20150401
  Transmission Date: 20150821
  Serious: Yes (Hospitalization, Other)
  Sender: FDA-Public Use
  Company Number: None

PATIENT
  Age: 75 Year
  Sex: Male
  Weight: 99.1 kg

DRUGS (2)
  1. LORTAB [Suspect]
     Active Substance: ACETAMINOPHEN\HYDROCODONE BITARTRATE
     Indication: AMNESIA
     Dates: end: 201304
  2. RAMIPRIL. [Concomitant]
     Active Substance: RAMIPRIL

REACTIONS (18)
  - Urinary incontinence [None]
  - Confusional state [None]
  - Hallucination [None]
  - Glucose tolerance impaired [None]
  - Intervertebral disc protrusion [None]
  - Constipation [None]
  - Urinary retention [None]
  - Amnesia [None]
  - Coronary artery disease [None]
  - Spondylolisthesis [None]
  - Areflexia [None]
  - Joint dislocation [None]
  - Hypoaesthesia [None]
  - Flatulence [None]
  - Fall [None]
  - Benign prostatic hyperplasia [None]
  - Hypoacusis [None]
  - Pain in extremity [None]

NARRATIVE: CASE EVENT DATE: 201304
